FAERS Safety Report 10495337 (Version 2)
Quarter: 2014Q4

REPORT INFORMATION
  Report Type: Report from Study
  Country: DE (occurrence: DE)
  Receive Date: 20141003
  Receipt Date: 20141003
  Transmission Date: 20150528
  Serious: Yes (Hospitalization)
  Sender: FDA-Public Use
  Company Number: DE-ASTELLAS-2013US007973

PATIENT
  Age: 19 Year
  Sex: Female

DRUGS (2)
  1. FOLSAEURE [Concomitant]
     Active Substance: FOLIC ACID
     Indication: PRODUCT USED FOR UNKNOWN INDICATION
     Dosage: UNK UNK, UNKNOWN/D
     Route: 048
     Dates: start: 20130125, end: 20130909
  2. TACROLIMUS. [Suspect]
     Active Substance: TACROLIMUS
     Indication: DERMATITIS ATOPIC
     Dosage: 0.03 %, ONCE WEEKLY
     Route: 061
     Dates: start: 20070710, end: 201301

REACTIONS (3)
  - Neurodermatitis [Recovered/Resolved]
  - Exposure during pregnancy [Recovered/Resolved]
  - Delivery [Unknown]

NARRATIVE: CASE EVENT DATE: 20130327
